FAERS Safety Report 4538267-1 (Version None)
Quarter: 2004Q4

REPORT INFORMATION
  Report Type: 
  Country: None (occurrence: None)
  Receive Date: 20041221
  Receipt Date: 20041206
  Transmission Date: 20050328
  Serious: Yes (Hospitalization, Disabling)
  Sender: FDA-Public Use
  Company Number: 2004GB02977

PATIENT
  Age: 78 Year
  Sex: Female

DRUGS (7)
  1. SEROQUEL [Suspect]
     Indication: DELUSIONAL DISORDER, PERSECUTORY TYPE
     Dosage: 25 MG DAILY PO
     Route: 048
     Dates: start: 20040101, end: 20041119
  2. SEROQUEL [Suspect]
     Indication: HALLUCINATION
     Dosage: 25 MG DAILY PO
     Route: 048
     Dates: start: 20040101, end: 20041119
  3. LUSTRAL [Suspect]
     Indication: DEPRESSION
     Dosage: 50MG-100MG BD
     Dates: start: 20000101
  4. LACTULOSE [Concomitant]
  5. CO-AMILOFRUSE [Concomitant]
  6. CO-CODAMOL [Concomitant]
  7. SENNA [Concomitant]

REACTIONS (7)
  - DYSPHAGIA [None]
  - DYSTONIA [None]
  - GAIT DISTURBANCE [None]
  - MEDICATION ERROR [None]
  - MOBILITY DECREASED [None]
  - TARDIVE DYSKINESIA [None]
  - TREMOR [None]
